FAERS Safety Report 6701803-0 (Version None)
Quarter: 2010Q2

REPORT INFORMATION
  Report Type: 
  Country: None (occurrence: None)
  Receive Date: 20100429
  Receipt Date: 20100416
  Transmission Date: 20101027
  Serious: Yes (Other)
  Sender: FDA-Public Use
  Company Number: AU-BAYER-201023362GPV

PATIENT
  Age: 63 Year
  Sex: Male

DRUGS (1)
  1. LEUKINE [Suspect]
     Indication: PROSTATE CANCER
     Dosage: 3 YEARS AT ALL, INITIALLY 90 DAYS THEN 30 DAYS EVERY 6 MONTH
     Route: 042

REACTIONS (3)
  - DRUG INEFFECTIVE [None]
  - INHIBITING ANTIBODIES [None]
  - INJECTION SITE ERYTHEMA [None]
